APPROVED DRUG PRODUCT: CYANOCOBALAMIN
Active Ingredient: CYANOCOBALAMIN
Strength: 1MG/ML
Dosage Form/Route: INJECTABLE;INJECTION
Application: A087551 | Product #001
Applicant: SOLOPAK MEDICAL PRODUCTS INC
Approved: Feb 29, 1984 | RLD: No | RS: No | Type: DISCN